FAERS Safety Report 5312344-X (Version None)
Quarter: 2007Q2

REPORT INFORMATION
  Report Type: 
  Country: None (occurrence: None)
  Receive Date: 20070430
  Receipt Date: 20070404
  Transmission Date: 20071010
  Serious: Yes (Death, Life-Threatening)
  Sender: FDA-Public Use
  Company Number: 2007AC00597

PATIENT
  Age: 18176 Day
  Sex: Male

DRUGS (6)
  1. SEROQUEL [Suspect]
     Indication: BIPOLAR DISORDER
     Route: 048
     Dates: start: 20070126, end: 20070318
  2. SEROQUEL [Suspect]
     Indication: DEPRESSION
     Route: 048
     Dates: start: 20070126, end: 20070318
  3. SEROQUEL [Suspect]
     Indication: SUICIDAL IDEATION
     Route: 048
     Dates: start: 20070126, end: 20070318
  4. PARNATE [Concomitant]
     Indication: DEPRESSION
  5. XANAX [Concomitant]
     Indication: ANXIETY
  6. PROPRANOLOL [Concomitant]
     Indication: FAMILIAL TREMOR

REACTIONS (3)
  - COAGULOPATHY [None]
  - LOSS OF CONSCIOUSNESS [None]
  - NEUROLEPTIC MALIGNANT SYNDROME [None]
